FAERS Safety Report 8914284 (Version 1)
Quarter: 2012Q4

REPORT INFORMATION
  Report Type: 
  Country: DE (occurrence: DE)
  Receive Date: 20121118
  Receipt Date: 20121118
  Transmission Date: 20130627
  Serious: Yes (Hospitalization)
  Sender: FDA-Public Use
  Company Number: DE-MYLANLABS-2012S1023182

PATIENT
  Age: 47 Year
  Sex: Male

DRUGS (9)
  1. BACLOFEN [Suspect]
     Indication: ACCIDENTAL OVERDOSE
     Dosage: 60mg bolus dose
     Route: 037
  2. BACLOFEN [Suspect]
     Indication: SPASTIC PARAPLEGIA
     Dosage: 60mg bolus dose
     Route: 037
  3. BACLOFEN [Suspect]
     Indication: DRUG WITHDRAWAL SYNDROME
     Dosage: 60mg bolus dose
     Route: 037
  4. BACLOFEN [Suspect]
     Indication: ACCIDENTAL OVERDOSE
     Dosage: 800 microg/day
     Route: 037
  5. BACLOFEN [Suspect]
     Indication: SPASTIC PARAPLEGIA
     Dosage: 800 microg/day
     Route: 037
  6. BACLOFEN [Suspect]
     Indication: DRUG WITHDRAWAL SYNDROME
     Dosage: 800 microg/day
     Route: 037
  7. BACLOFEN [Suspect]
     Indication: ACCIDENTAL OVERDOSE
     Dosage: 480 micro/24hour
     Route: 037
  8. BACLOFEN [Suspect]
     Indication: SPASTIC PARAPLEGIA
     Dosage: 480 micro/24hour
     Route: 037
  9. BACLOFEN [Suspect]
     Indication: DRUG WITHDRAWAL SYNDROME
     Dosage: 480 micro/24hour
     Route: 037

REACTIONS (18)
  - Accidental overdose [Recovered/Resolved]
  - Toxicity to various agents [Recovered/Resolved]
  - Dizziness [Recovered/Resolved]
  - Fatigue [Recovered/Resolved]
  - Asthenia [Recovered/Resolved]
  - Loss of consciousness [Recovered/Resolved]
  - Epilepsy [Recovered/Resolved]
  - Apnoea [Recovered/Resolved]
  - Hypotension [Recovered/Resolved]
  - Hyperthermia [Recovered/Resolved]
  - Drug withdrawal syndrome [Recovered/Resolved]
  - Complex partial seizures [Recovered/Resolved]
  - Tachycardia [Recovered/Resolved]
  - Automatism [Recovered/Resolved]
  - Delirium [Recovered/Resolved]
  - Confusional state [Recovered/Resolved]
  - Hallucination [Recovered/Resolved]
  - Aggression [Recovered/Resolved]
